FAERS Safety Report 6105562-4 (Version None)
Quarter: 2009Q1

REPORT INFORMATION
  Report Type: 
  Country: None (occurrence: None)
  Receive Date: 20090304
  Receipt Date: 20090304
  Transmission Date: 20090719
  Serious: Yes (Life-Threatening, Hospitalization)
  Sender: FDA-Public Use
  Company Number: None

PATIENT
  Sex: Female
  Weight: 81.6475 kg

DRUGS (3)
  1. PROZAC [Suspect]
     Indication: DEPRESSION
     Dosage: 1 PER DAY PO
     Route: 048
     Dates: start: 20090215, end: 20090227
  2. PROZAC [Suspect]
     Indication: PAIN MANAGEMENT
     Dosage: 1 PER DAY PO
     Route: 048
     Dates: start: 20090215, end: 20090227
  3. AMBIEN [Suspect]
     Indication: INSOMNIA
     Dosage: AS NEEDED PO
     Route: 048
     Dates: start: 19980129, end: 20090227

REACTIONS (8)
  - BURNS FIRST DEGREE [None]
  - BURNS SECOND DEGREE [None]
  - BURNS THIRD DEGREE [None]
  - CRYING [None]
  - DEPRESSION [None]
  - IMPAIRED WORK ABILITY [None]
  - SCAR [None]
  - SENSORY LOSS [None]
